FAERS Safety Report 5474692-2 (Version None)
Quarter: 2007Q4

REPORT INFORMATION
  Report Type: 
  Country: None (occurrence: None)
  Receive Date: 20071002
  Receipt Date: 20070920
  Transmission Date: 20080405
  Serious: Yes (Death)
  Sender: FDA-Public Use
  Company Number: CH-JNJFOC-20070905062

PATIENT
  Age: 67 Year
  Sex: Male

DRUGS (1)
  1. ADOLONTA [Suspect]
     Indication: HEADACHE
     Route: 065

REACTIONS (1)
  - COMPLETED SUICIDE [None]
